FAERS Safety Report 10454062 (Version 2)
Quarter: 2015Q1

REPORT INFORMATION
  Report Type: Spontaneous
  Country: US (occurrence: US)
  Receive Date: 20140915
  Receipt Date: 20150209
  Transmission Date: 20150720
  Serious: No
  Sender: FDA-Public Use
  Company Number: US-BRISTOL-MYERS SQUIBB COMPANY-20963906

PATIENT
  Age: 65 Year
  Sex: Female
  Weight: 113.38 kg

DRUGS (1)
  1. ELIQUIS [Suspect]
     Active Substance: APIXABAN
     Indication: CEREBROVASCULAR ACCIDENT PROPHYLAXIS
     Dosage: 5 MG, UNK
     Route: 065

REACTIONS (2)
  - Nasopharyngitis [Unknown]
  - Mass [Unknown]

NARRATIVE: CASE EVENT DATE: 20140603
